FAERS Safety Report 9512002 (Version 1)
Quarter: 2013Q3

REPORT INFORMATION
  Report Type: Spontaneous
  Country: FR (occurrence: FR)
  Receive Date: 20130910
  Receipt Date: 20130910
  Transmission Date: 20140515
  Serious: Yes (Hospitalization)
  Sender: FDA-Public Use
  Company Number: PHHY2013FR098362

PATIENT
  Age: 79 Year
  Sex: Male

DRUGS (13)
  1. TAREG [Suspect]
     Dosage: 80 MG, DAILY
     Route: 048
     Dates: end: 20130530
  2. ATENOLOL [Suspect]
     Dosage: 50 MG, DAILY
     Route: 048
     Dates: end: 20130530
  3. TERALITHE [Suspect]
     Indication: MAJOR DEPRESSION
     Dosage: 400 MG, DAILY
     Route: 048
     Dates: start: 20130523, end: 20130527
  4. TERALITHE [Suspect]
     Dosage: 600 MG, DAILY
     Route: 048
     Dates: start: 20130528, end: 20130530
  5. THERALENE [Suspect]
     Dosage: 50 MG, DAILY
     Route: 048
     Dates: end: 20130530
  6. ZOLOFT [Suspect]
     Dosage: 50 MG, DAILY
     Route: 048
  7. ZOLOFT [Suspect]
     Dosage: 10 MG, A DAY
  8. SERESTA [Suspect]
     Dosage: 50 MG, DAILY
     Route: 048
  9. SERESTA [Suspect]
     Dosage: 10 MG, A DAY
  10. TADENAN [Suspect]
     Dosage: 50 MG, DAILY
     Route: 048
     Dates: end: 20130530
  11. JOSIR [Concomitant]
     Dosage: 0.4 MG, UNK
  12. INEXIUM//ESOMEPRAZOLE MAGNESIUM [Concomitant]
     Dosage: 20 MG, DAILY
  13. PRAVADUAL [Concomitant]
     Dosage: 40 TO 80 MG DAILY

REACTIONS (2)
  - Status epilepticus [Recovered/Resolved]
  - Convulsion [Recovered/Resolved]
